FAERS Safety Report 9180827 (Version 2)
Quarter: 2013Q2

REPORT INFORMATION
  Report Type: Spontaneous
  Country: GB (occurrence: None)
  Receive Date: 20130320
  Receipt Date: 20130515
  Transmission Date: 20140414
  Serious: Yes (Other)
  Sender: FDA-Public Use
  Company Number: AUR-APL-2013-02121

PATIENT
  Sex: Male

DRUGS (1)
  1. SERTRALINE [Suspect]
     Indication: PRODUCT USED FOR UNKNOWN INDICATION

REACTIONS (7)
  - Aggression [None]
  - Malaise [None]
  - Depression [None]
  - Migraine [None]
  - Diarrhoea [None]
  - Urethral haemorrhage [None]
  - Hypertension [None]
